FAERS Safety Report 12659127 (Version 1)
Quarter: 2016Q3

REPORT INFORMATION
  Report Type: Spontaneous
  Country: AU (occurrence: AU)
  Receive Date: 20160817
  Receipt Date: 20160817
  Transmission Date: 20161109
  Serious: Yes (Hospitalization)
  Sender: FDA-Public Use
  Company Number: AU-PFIZER INC-2016372852

PATIENT
  Sex: Female

DRUGS (1)
  1. CYKLOKAPRON [Suspect]
     Active Substance: TRANEXAMIC ACID
     Indication: MENORRHAGIA
     Dosage: UNK

REACTIONS (3)
  - Uterine leiomyoma [Not Recovered/Not Resolved]
  - Adenomyosis [Not Recovered/Not Resolved]
  - Endometriosis [Not Recovered/Not Resolved]
